FAERS Safety Report 20493353 (Version 1)
Quarter: 2022Q1

REPORT INFORMATION
  Report Type: Spontaneous
  Country: None (occurrence: US)
  Receive Date: 20220220
  Receipt Date: 20220220
  Transmission Date: 20220423
  Serious: No
  Sender: FDA-Public Use
  Company Number: US-Hangzhou Minsheng Binjiang Pharmaceutical Co., Ltd.-2126049

PATIENT
  Age: 69 Year
  Sex: Female

DRUGS (2)
  1. ALENDRONATE SODIUM [Suspect]
     Active Substance: ALENDRONATE SODIUM
     Indication: Bone loss
     Route: 050
     Dates: start: 2018, end: 20220122
  2. ALLOPURINOL [Concomitant]
     Active Substance: ALLOPURINOL

REACTIONS (1)
  - Gout [Unknown]

NARRATIVE: CASE EVENT DATE: 20220101
